FAERS Safety Report 7626289-3 (Version None)
Quarter: 2011Q3

REPORT INFORMATION
  Report Type: 
  Country: None (occurrence: None)
  Receive Date: 20110721
  Receipt Date: 20110713
  Transmission Date: 20111222
  Serious: Yes (Death)
  Sender: FDA-Public Use
  Company Number: US-ACTELION-A-US2011-50693

PATIENT

DRUGS (2)
  1. TRACLEER [Suspect]
     Indication: PULMONARY ARTERIAL HYPERTENSION
     Dosage: 125 MG, BID
     Route: 048
     Dates: start: 20110405, end: 20110618
  2. VENTAVIS [Suspect]
     Indication: PULMONARY ARTERIAL HYPERTENSION
     Dosage: 5 MCG
     Route: 055
     Dates: start: 20090626, end: 20110618

REACTIONS (3)
  - VENTRICULAR ARRHYTHMIA [None]
  - ACUTE CORONARY SYNDROME [None]
  - PULMONARY EMBOLISM [None]
